FAERS Safety Report 4520687-2 (Version None)
Quarter: 2004Q4

REPORT INFORMATION
  Report Type: 
  Country: None (occurrence: None)
  Receive Date: 20041203
  Receipt Date: 20041119
  Transmission Date: 20050328
  Serious: Yes (Hospitalization)
  Sender: FDA-Public Use
  Company Number: 105445ISR

PATIENT
  Age: 18 Year
  Sex: Male

DRUGS (1)
  1. FLUOROURACIL [Suspect]
     Indication: SIGNET-RING CELL CARCINOMA
     Dosage: INTRAVENOUS (NOS)
     Route: 042

REACTIONS (6)
  - ATRIAL THROMBOSIS [None]
  - CARDIOMYOPATHY ACUTE [None]
  - CATHETER RELATED COMPLICATION [None]
  - INTRACARDIAC THROMBUS [None]
  - MYOCARDIAL INFARCTION [None]
  - VENTRICULAR DYSFUNCTION [None]
